FAERS Safety Report 9886937 (Version 1)
Quarter: 2014Q1

REPORT INFORMATION
  Report Type: Report from Study
  Country: US (occurrence: US)
  Receive Date: 20140211
  Receipt Date: 20140211
  Transmission Date: 20141002
  Serious: Yes (Death)
  Sender: FDA-Public Use
  Company Number: US-ROCHE-1323917

PATIENT
  Age: 69 Year
  Sex: Female

DRUGS (3)
  1. AVASTIN [Suspect]
     Indication: UTERINE CANCER
     Dosage: DOSE: 900 MG, DOS: 14/APR/2011, 05/MAY/2011, 26/MAY/2011, 16/JUN/2011, 07/JUL/2011
     Route: 042
  2. ACTEMRA [Suspect]
     Indication: CASTLEMAN^S DISEASE
     Dosage: DOSE: 11/NOV/2011AND 10/JUL/2011
     Route: 042
     Dates: start: 20110626
  3. ACTEMRA [Suspect]
     Route: 042
     Dates: start: 20110906

REACTIONS (2)
  - Death [Fatal]
  - Off label use [Unknown]
